FAERS Safety Report 7370282-5 (Version None)
Quarter: 2011Q1

REPORT INFORMATION
  Report Type: 
  Country: None (occurrence: None)
  Receive Date: 20110323
  Receipt Date: 20110321
  Transmission Date: 20110831
  Serious: Yes (Disabling, Other)
  Sender: FDA-Public Use
  Company Number: US-PFIZER INC-2010079891

PATIENT
  Sex: Female
  Weight: 81.633 kg

DRUGS (5)
  1. LYRICA [Suspect]
     Dosage: UNK
     Route: 048
     Dates: start: 20050101
  2. WARFARIN [Concomitant]
     Indication: ANTICOAGULANT THERAPY
     Dosage: 2.5 MG, 1X/DAY
     Route: 048
  3. INSULIN [Concomitant]
     Dosage: UNK
  4. LYRICA [Suspect]
     Indication: NEUROPATHY PERIPHERAL
     Dosage: 100 MG, 3X/DAY
     Route: 048
     Dates: start: 20050101
  5. GLYBURIDE [Concomitant]
     Indication: DIABETES MELLITUS
     Dosage: 6 MG, 2X/DAY
     Route: 048

REACTIONS (8)
  - PAIN IN EXTREMITY [None]
  - PAIN [None]
  - OEDEMA PERIPHERAL [None]
  - HYPERTENSION [None]
  - WEIGHT INCREASED [None]
  - MYOCARDIAL INFARCTION [None]
  - GAIT DISTURBANCE [None]
  - INSOMNIA [None]
